FAERS Safety Report 7449603-0 (Version None)
Quarter: 2011Q2

REPORT INFORMATION
  Report Type: 
  Country: None (occurrence: None)
  Receive Date: 20110502
  Receipt Date: 20110415
  Transmission Date: 20111010
  Serious: Yes (Hospitalization)
  Sender: FDA-Public Use
  Company Number: US-BAYER-201040612NA

PATIENT
  Age: 22 Year
  Sex: Female
  Weight: 107.3 kg

DRUGS (9)
  1. YAZ [Suspect]
     Indication: CONTRACEPTION
     Dosage: UNK UNK, UNK
     Route: 048
     Dates: start: 20080619, end: 20081025
  2. ACETAMINOPHEN AND HYDROCODONE BITARTRATE [Concomitant]
     Dosage: UNK
     Route: 048
     Dates: start: 20080915
  3. EXCEDRIN (MIGRAINE) [Concomitant]
  4. IBUPROFEN [Concomitant]
  5. LORTAB [Concomitant]
  6. BICILLIN C-R [Concomitant]
     Dosage: UNK
     Dates: start: 20080801
  7. ALBUTEROL [Concomitant]
     Dosage: 0.083 %, UNK
     Route: 055
  8. ALLERGY MEDICATION [Concomitant]
  9. AUGMENTIN [Concomitant]
     Dosage: UNK
     Route: 048
     Dates: start: 20080827

REACTIONS (2)
  - PAIN IN EXTREMITY [None]
  - DEEP VEIN THROMBOSIS [None]
